FAERS Safety Report 23363924 (Version 1)
Quarter: 2024Q1

REPORT INFORMATION
  Report Type: Spontaneous
  Country: CN (occurrence: None)
  Receive Date: 20240104
  Receipt Date: 20240104
  Transmission Date: 20240409
  Serious: Yes (Hospitalization)
  Sender: FDA-Public Use
  Company Number: 2024A000937

PATIENT
  Age: 28124 Day
  Sex: Male

DRUGS (1)
  1. OSIMERTINIB MESYLATE [Suspect]
     Active Substance: OSIMERTINIB MESYLATE
     Indication: Lung neoplasm malignant
     Route: 048
     Dates: start: 20231120, end: 20231210

REACTIONS (5)
  - Renal impairment [Not Recovered/Not Resolved]
  - Oliguria [Unknown]
  - Oedema peripheral [Unknown]
  - Rash [Unknown]
  - Mouth ulceration [Unknown]

NARRATIVE: CASE EVENT DATE: 20231205
